FAERS Safety Report 7077073-3 (Version None)
Quarter: 2010Q4

REPORT INFORMATION
  Report Type: 
  Country: None (occurrence: None)
  Receive Date: 20101101
  Receipt Date: 20101022
  Transmission Date: 20110411
  Serious: Yes (Hospitalization)
  Sender: FDA-Public Use
  Company Number: AU-NOVOPROD-313894

PATIENT
  Age: 69 Year
  Sex: Female

DRUGS (15)
  1. NOVORAPID FLEXPEN [Suspect]
     Indication: TYPE 2 DIABETES MELLITUS
     Dosage: 50 U, QD 20+15+15
     Route: 058
  2. MONOPLUS                           /01324101/ [Concomitant]
     Dosage: 1 UNK, UNK
     Route: 048
  3. LANTUS [Concomitant]
     Dosage: 15 U, QD
     Route: 058
  4. AZATHIOPRINE [Concomitant]
     Dosage: 2 MG, QD
     Route: 048
  5. PREDNISOLONE                       /00016202/ [Concomitant]
     Dosage: 5 MG, QD
     Route: 048
  6. SIMVASTATIN [Concomitant]
     Dosage: 80 MG, QD
     Route: 048
  7. OXAZEPAM [Concomitant]
     Dosage: 30 MG, QD
     Route: 048
  8. LASIX [Concomitant]
     Dosage: 120 MG, QD
     Route: 048
  9. SLOW-K [Concomitant]
     Dosage: 600 MG, QD
     Route: 048
  10. PANADEINE                          /00154101/ [Concomitant]
     Dosage: 6 UNK, UNK
     Route: 048
  11. ASPIRIN [Concomitant]
     Dosage: 1 UNK, UNK
     Route: 048
  12. ISOMONIT                           /00586302/ [Concomitant]
     Dosage: 60 MG, QD
     Route: 048
  13. SYMBICORT [Concomitant]
     Dosage: 2 UNK, UNK
  14. ATROVENT [Concomitant]
     Dosage: BD/INHALED
     Route: 055
  15. VENTOLIN [Concomitant]
     Dosage: UNK
     Route: 055

REACTIONS (2)
  - INJECTION SITE ABSCESS [None]
  - INJECTION SITE CELLULITIS [None]
